FAERS Safety Report 11618136 (Version 2)
Quarter: 2015Q4

REPORT INFORMATION
  Report Type: Report from Study
  Country: AR (occurrence: AR)
  Receive Date: 20151010
  Receipt Date: 20151027
  Transmission Date: 20160304
  Serious: Yes (Other)
  Sender: FDA-Public Use
  Company Number: PHHY2015AR121698

PATIENT
  Sex: Male

DRUGS (1)
  1. EXFORGE [Suspect]
     Active Substance: AMLODIPINE BESYLATE\VALSARTAN
     Indication: HYPERTENSION
     Dosage: (VALSARTAN 80 AND AMLODIPINE 5), QD (1 IN THE MORNING)
     Route: 065
     Dates: start: 201412

REACTIONS (4)
  - Arthropathy [Recovering/Resolving]
  - Gait disturbance [Recovering/Resolving]
  - Device failure [Recovering/Resolving]
  - Osteomyelitis [Recovering/Resolving]
